FAERS Safety Report 10644644 (Version 3)
Quarter: 2014Q4

REPORT INFORMATION
  Report Type: Spontaneous
  Country: EE (occurrence: EE)
  Receive Date: 20141210
  Receipt Date: 20141222
  Transmission Date: 20150529
  Serious: Yes (Other)
  Sender: FDA-Public Use
  Company Number: EE-ROCHE-1506090

PATIENT
  Age: 17 Year
  Sex: Female
  Weight: 59 kg

DRUGS (3)
  1. METHOTREXATE [Concomitant]
     Active Substance: METHOTREXATE
     Route: 048
  2. ROACTEMRA [Suspect]
     Active Substance: TOCILIZUMAB
     Indication: JUVENILE IDIOPATHIC ARTHRITIS
     Dosage: 2.7 MG/KG
     Route: 058
     Dates: start: 20141126
  3. CELEBREX [Concomitant]
     Active Substance: CELECOXIB
     Dosage: 100 MG PER DAY AS A COURSE OF TREATMENT
     Route: 065

REACTIONS (1)
  - Haematoma [Not Recovered/Not Resolved]

NARRATIVE: CASE EVENT DATE: 20141128
